FAERS Safety Report 20895142 (Version 2)
Quarter: 2022Q2

REPORT INFORMATION
  Report Type: Spontaneous
  Country: JP (occurrence: JP)
  Receive Date: 20220531
  Receipt Date: 20220606
  Transmission Date: 20220721
  Serious: Yes (Hospitalization, Disabling, Other)
  Sender: FDA-Public Use
  Company Number: JP-BAYER-2022A051540

PATIENT
  Sex: Male

DRUGS (26)
  1. EYLEA [Suspect]
     Active Substance: AFLIBERCEPT
     Indication: Diabetic retinal oedema
     Dosage: DAILY DOSE 2 MG, RIGHT EYE; SOLUTION FOR INJECTION
     Route: 031
     Dates: start: 20211007, end: 20211007
  2. EYLEA [Suspect]
     Active Substance: AFLIBERCEPT
     Indication: Diabetic retinopathy
     Dosage: DAILY DOSE 2 MG, RIGHT EYE; SOLUTION FOR INJECTION
     Route: 031
     Dates: start: 20211104, end: 20211104
  3. EYLEA [Suspect]
     Active Substance: AFLIBERCEPT
     Dosage: 2 MG, ONCE, BOTH EYES; SOLUTION FOR INJECTION
     Route: 031
     Dates: start: 20220217, end: 20220217
  4. KENACORT [Concomitant]
     Active Substance: TRIAMCINOLONE
     Indication: Oedema
     Dosage: BOTH EYES
     Route: 031
     Dates: start: 20200811
  5. KENACORT [Concomitant]
     Active Substance: TRIAMCINOLONE
     Dosage: LEFT EYE
     Route: 031
     Dates: start: 20210930
  6. KENACORT [Concomitant]
     Active Substance: TRIAMCINOLONE
     Dosage: BOTH EYES
     Route: 031
     Dates: start: 20211202
  7. KENACORT [Concomitant]
     Active Substance: TRIAMCINOLONE
     Dosage: LEFT EYE
     Route: 031
     Dates: start: 20220407
  8. BROMFENAC SODIUM [Concomitant]
     Active Substance: BROMFENAC SODIUM
     Indication: Oedema
     Dosage: BOTH EYES, BID
     Route: 047
     Dates: start: 20200811
  9. PIRENOXINE [Concomitant]
     Active Substance: PIRENOXINE
     Indication: Cataract
     Dosage: UNK
     Route: 047
     Dates: start: 20211202
  10. PIRENOXINE [Concomitant]
     Active Substance: PIRENOXINE
     Indication: Prophylaxis
  11. CARNACULIN [KALLIDINOGENASE] [Concomitant]
     Indication: Product used for unknown indication
  12. CARNACULIN [KALLIDINOGENASE] [Concomitant]
  13. CARBAZOCHROME SODIUM SULFONATE [Concomitant]
     Active Substance: CARBAZOCHROME SODIUM SULFONATE
     Indication: Product used for unknown indication
  14. CARBAZOCHROME SODIUM SULFONATE [Concomitant]
     Active Substance: CARBAZOCHROME SODIUM SULFONATE
  15. TRIAMCINOLONE ACETONIDE [Concomitant]
     Active Substance: TRIAMCINOLONE ACETONIDE
     Indication: Product used for unknown indication
     Dosage: BOTH EYES
     Dates: start: 20200811
  16. TRIAMCINOLONE ACETONIDE [Concomitant]
     Active Substance: TRIAMCINOLONE ACETONIDE
     Dosage: LEFT EYE
     Dates: start: 20210930
  17. TRIAMCINOLONE ACETONIDE [Concomitant]
     Active Substance: TRIAMCINOLONE ACETONIDE
     Dosage: BOTH EYES
     Dates: start: 20211202
  18. TRIAMCINOLONE ACETONIDE [Concomitant]
     Active Substance: TRIAMCINOLONE ACETONIDE
     Dosage: LEFT EYE
     Dates: start: 20220407
  19. LEVOFLOXACIN HEMIHYDRATE [Concomitant]
     Active Substance: LEVOFLOXACIN
     Indication: Product used for unknown indication
     Dosage: BOTH EYES, QID
     Route: 047
  20. CILOSTAZOL [Concomitant]
     Active Substance: CILOSTAZOL
     Indication: Product used for unknown indication
     Dosage: 1 DF, BID
     Route: 048
  21. TOCOPHERYL NICOTINATE, D-.ALPHA. [Concomitant]
     Active Substance: TOCOPHERYL NICOTINATE, D-.ALPHA.
     Indication: Product used for unknown indication
     Dosage: 1 CAPSULE, BID
  22. AMARYL [Concomitant]
     Active Substance: GLIMEPIRIDE
     Indication: Product used for unknown indication
     Dosage: 1 DF, QD
  23. JANUVIA [Concomitant]
     Active Substance: SITAGLIPTIN PHOSPHATE
     Indication: Product used for unknown indication
     Dosage: 1 DF, QD
  24. METGLUCO [Concomitant]
     Active Substance: METFORMIN HYDROCHLORIDE
     Indication: Product used for unknown indication
     Dosage: 2 DF, TID
  25. KALLIDINOGENASE [Concomitant]
     Active Substance: KALLIDINOGENASE
     Indication: Product used for unknown indication
     Dosage: 1 DF, TID
  26. CARBAZOCHROME SODIUM SULFONATE [Concomitant]
     Active Substance: CARBAZOCHROME SODIUM SULFONATE
     Indication: Product used for unknown indication
     Dosage: 1 DF, TID

REACTIONS (5)
  - Lacunar infarction [Recovered/Resolved with Sequelae]
  - Dysarthria [Recovered/Resolved with Sequelae]
  - Hypoaesthesia [Recovered/Resolved with Sequelae]
  - Hemiplegia [Recovering/Resolving]
  - Dyslalia [Recovering/Resolving]

NARRATIVE: CASE EVENT DATE: 20220322
